FAERS Safety Report 23237747 (Version 2)
Quarter: 2024Q3

REPORT INFORMATION
  Report Type: Spontaneous
  Country: US (occurrence: US)
  Receive Date: 20231128
  Receipt Date: 20240809
  Transmission Date: 20241017
  Serious: Yes (Other)
  Sender: BRISTOL MYERS SQUIBB
  Company Number: US-BRISTOL-MYERS SQUIBB COMPANY-2023-171245

PATIENT
  Age: 73 Year
  Sex: Female
  Weight: 74.84 kg

DRUGS (35)
  1. REVLIMID [Suspect]
     Active Substance: LENALIDOMIDE
     Indication: Plasma cell myeloma
     Route: 048
  2. REVLIMID [Suspect]
     Active Substance: LENALIDOMIDE
     Dosage: TAKE ONE CAPSULE (25MG) BY MOUTH ONCE DAILY FOR 14 DAYS OF EACH 21 DAY CYCLE
     Route: 048
     Dates: start: 20240408
  3. REVLIMID [Suspect]
     Active Substance: LENALIDOMIDE
     Dosage: TAKE ONE CAPSULE (20MG) BY MOUTH ONCE DAILY FOR 14 DAYS OF EACH 21 DAY CYCLE
     Route: 048
     Dates: start: 20240618
  4. REVLIMID [Suspect]
     Active Substance: LENALIDOMIDE
     Dosage: TAKE ONE CAPSULE (20MG) BY MOUTH ONCE DAILY FOR 14 DAYS ON, 7 DAYS OFF OF EACH 21 DAY CYCLE
     Route: 048
     Dates: start: 20240801
  5. REVLIMID [Suspect]
     Active Substance: LENALIDOMIDE
     Dosage: TAKE ONE CAPSULE (20MG) BY MOUTH ONCE DAILY FOR 14 DAYS ON, 7 DAYS OFF OF EACH 21 DAY CYCLE
     Route: 048
  6. FERROUS SULFATE [Concomitant]
     Active Substance: FERROUS SULFATE
  7. ASPIRIN [Concomitant]
     Active Substance: ASPIRIN
  8. VITAMIN B12 [Concomitant]
     Active Substance: CYANOCOBALAMIN
     Dosage: 1000MCG/15ML LIQD
  9. RIZATRIPTAN BENZOATE [Concomitant]
     Active Substance: RIZATRIPTAN BENZOATE
  10. MULTIMIN [ASCORBIC ACID;DEXPANTHENOL;ERGOCALCIFEROL;NICOTINAMIDE;PYRID [Concomitant]
  11. KLOR-CON M20 [Concomitant]
     Active Substance: POTASSIUM CHLORIDE
  12. CALTRATE 600+D PLUS [Concomitant]
  13. DEXAMETHASONE [Concomitant]
     Active Substance: DEXAMETHASONE
     Route: 048
  14. ATORVASTATIN [Concomitant]
     Active Substance: ATORVASTATIN
  15. TRAZODONE HCL [Concomitant]
     Active Substance: TRAZODONE HYDROCHLORIDE
  16. VELCADE [Concomitant]
     Active Substance: BORTEZOMIB
     Route: 042
  17. ONDANSETRON HYDROCHLORIDE [Concomitant]
     Active Substance: ONDANSETRON HYDROCHLORIDE
  18. CARVEDILOL [Concomitant]
     Active Substance: CARVEDILOL
     Route: 048
  19. ACYCLOVIR [Concomitant]
     Active Substance: ACYCLOVIR
     Route: 048
  20. ZOLPIDEM TARTRATE [Concomitant]
     Active Substance: ZOLPIDEM TARTRATE
  21. MONTELUKAST SODIUM [Concomitant]
     Active Substance: MONTELUKAST SODIUM
  22. XGEVA [Concomitant]
     Active Substance: DENOSUMAB
     Dosage: 120MG/1.7ML
  23. AMLODIPINE BESYLATE [Concomitant]
     Active Substance: AMLODIPINE BESYLATE
  24. FLUOXETINE HYDROCHLORIDE [Concomitant]
     Active Substance: FLUOXETINE HYDROCHLORIDE
  25. LEVOTHYROXINE SODIUM [Concomitant]
     Active Substance: LEVOTHYROXINE SODIUM
  26. BENZONATATE [Concomitant]
     Active Substance: BENZONATATE
  27. LISINOPRIL [Concomitant]
     Active Substance: LISINOPRIL
  28. DONEPEZIL HYDROCHLORIDE [Concomitant]
     Active Substance: DONEPEZIL HYDROCHLORIDE
  29. PANTOPRAZOLE [Concomitant]
     Active Substance: PANTOPRAZOLE
  30. ACETAMINOPHEN [Concomitant]
     Active Substance: ACETAMINOPHEN
     Route: 048
  31. CARBAMAZEPINE [Concomitant]
     Active Substance: CARBAMAZEPINE
  32. PROCHLORPERAZINE [Concomitant]
     Active Substance: PROCHLORPERAZINE
  33. GABAPENTIN [Concomitant]
     Active Substance: GABAPENTIN
  34. DICLOFENAC [Concomitant]
     Active Substance: DICLOFENAC
  35. COLESTIPOL HYDROCHLORIDE [Concomitant]
     Active Substance: COLESTIPOL HYDROCHLORIDE

REACTIONS (3)
  - Fatigue [Unknown]
  - Off label use [Unknown]
  - Neuropathy peripheral [Unknown]
